FAERS Safety Report 5169503-9 (Version None)
Quarter: 2006Q4

REPORT INFORMATION
  Report Type: 
  Country: None (occurrence: None)
  Receive Date: 20061204
  Receipt Date: 20061123
  Transmission Date: 20070319
  Serious: Yes (Other)
  Sender: FDA-Public Use
  Company Number: 2006AP001052

PATIENT
  Age: 84 Year
  Sex: Female

DRUGS (4)
  1. PAROXETINE HCL [Suspect]
     Indication: PANIC DISORDER
     Dosage: 40 MG; QD; PO
     Route: 048
     Dates: start: 20030101
  2. SINEQUAN [Concomitant]
  3. XANAX [Concomitant]
  4. NEXIUM [Concomitant]

REACTIONS (2)
  - DEMENTIA [None]
  - DRUG TOXICITY [None]
